FAERS Safety Report 18569605 (Version 1)
Quarter: 2020Q4

REPORT INFORMATION
  Report Type: Spontaneous
  Country: US (occurrence: US)
  Receive Date: 20201201
  Receipt Date: 20201201
  Transmission Date: 20210114
  Serious: Yes (Congenital Anomaly)
  Sender: FDA-Public Use
  Company Number: None

PATIENT
  Age: 48 Year
  Sex: Female

DRUGS (4)
  1. HYDROXYZ PAM [Concomitant]
     Active Substance: HYDROXYZINE PAMOATE
  2. HUMIRA [Concomitant]
     Active Substance: ADALIMUMAB
  3. XELJANZ XR [Suspect]
     Active Substance: TOFACITINIB CITRATE
     Indication: RHEUMATOID ARTHRITIS
     Route: 048
     Dates: start: 20200914
  4. MELOXICAM. [Concomitant]
     Active Substance: MELOXICAM

REACTIONS (2)
  - Surgery [None]
  - Therapy interrupted [None]

NARRATIVE: CASE EVENT DATE: 20201130
